FAERS Safety Report 5964173-1 (Version None)
Quarter: 2008Q4

REPORT INFORMATION
  Report Type: 
  Country: None (occurrence: None)
  Receive Date: 20081119
  Receipt Date: 20081006
  Transmission Date: 20090506
  Serious: No
  Sender: FDA-Public Use
  Company Number: WAES 0810USA02192

PATIENT
  Age: 65 Year
  Sex: Female
  Weight: 76.2043 kg

DRUGS (5)
  1. JANUVIA [Suspect]
     Indication: DIABETES MELLITUS
     Dosage: 100 MG/DAILY/PO
     Route: 048
     Dates: start: 20080818
  2. TENUATE [Concomitant]
  3. WELLBUTRIN XL [Concomitant]
  4. ZOLOFT [Concomitant]
  5. METFORMIN HCL [Concomitant]

REACTIONS (1)
  - EYE INFLAMMATION [None]
